FAERS Safety Report 21918622 (Version 17)
Quarter: 2023Q2

REPORT INFORMATION
  Report Type: Report from Study
  Country: US (occurrence: US)
  Receive Date: 20230127
  Receipt Date: 20230623
  Transmission Date: 20230721
  Serious: No
  Sender: FDA-Public Use
  Company Number: US-002147023-NVSC2023US015952

PATIENT
  Age: 61 Year
  Sex: Female
  Weight: 68.934 kg

DRUGS (7)
  1. TREPROSTINIL [Suspect]
     Active Substance: TREPROSTINIL
     Indication: Pulmonary arterial hypertension
     Dosage: 15 NG/KG/MIN, CONTINUOUS
     Route: 042
  2. TREPROSTINIL [Suspect]
     Active Substance: TREPROSTINIL
     Dosage: 13 NG/KG/MIN, CONTINUOUS
     Route: 042
     Dates: start: 20230120
  3. TREPROSTINIL [Suspect]
     Active Substance: TREPROSTINIL
     Dosage: 19 NG/KG/MIN, CONTINUOUS
     Route: 042
     Dates: start: 20230120
  4. TREPROSTINIL [Suspect]
     Active Substance: TREPROSTINIL
     Dosage: 27 NG/KG/MIN, CONTINUOUS
     Route: 042
     Dates: start: 20230120
  5. TREPROSTINIL [Suspect]
     Active Substance: TREPROSTINIL
     Dosage: 37 ML PER DAY
     Route: 042
  6. TREPROSTINIL [Suspect]
     Active Substance: TREPROSTINIL
     Dosage: UNK
     Route: 065
  7. SILDENAFIL CITRATE [Concomitant]
     Active Substance: SILDENAFIL CITRATE
     Indication: Product used for unknown indication
     Dosage: UNK
     Route: 065

REACTIONS (30)
  - Bowel movement irregularity [Unknown]
  - Vision blurred [Unknown]
  - Malaise [Unknown]
  - Hypersomnia [Unknown]
  - Weight decreased [Unknown]
  - Stress [Unknown]
  - Tongue disorder [Unknown]
  - Insomnia [Unknown]
  - Pain [Unknown]
  - Anxiety [Unknown]
  - Swelling face [Unknown]
  - Eating disorder [Unknown]
  - Swelling [Unknown]
  - Dyspepsia [Unknown]
  - Feeling hot [Unknown]
  - Nausea [Unknown]
  - Pain in jaw [Unknown]
  - Peripheral swelling [Unknown]
  - Arthralgia [Unknown]
  - Headache [Unknown]
  - Overdose [Unknown]
  - Decreased appetite [Unknown]
  - Vomiting [Unknown]
  - Rash [Unknown]
  - Erythema [Unknown]
  - Injection site pain [Not Recovered/Not Resolved]
  - Skin fissures [Unknown]
  - Heart rate irregular [Unknown]
  - Diarrhoea [Unknown]
  - Product quality issue [Unknown]

NARRATIVE: CASE EVENT DATE: 20230205
